FAERS Safety Report 4393386-8 (Version None)
Quarter: 2004Q3

REPORT INFORMATION
  Report Type: 
  Country: None (occurrence: None)
  Receive Date: 20040707
  Receipt Date: 20040707
  Transmission Date: 20050211
  Serious: Yes (Hospitalization, Disabling, Congenital Anomaly)
  Sender: FDA-Public Use
  Company Number: None

PATIENT
  Age: 19 Year
  Sex: Female
  Weight: 58.9676 kg

DRUGS (1)
  1. LUPRON [Suspect]
     Indication: ENDOMETRIOSIS
     Dosage: 3.75 MG 1 MONTH IM
     Route: 030
     Dates: start: 19970108, end: 19970708

REACTIONS (14)
  - AMNESIA [None]
  - ATROPHY [None]
  - BONE DISORDER [None]
  - BONE PAIN [None]
  - CONFUSIONAL STATE [None]
  - DEPRESSION [None]
  - FATIGUE [None]
  - HALLUCINATION [None]
  - HOT FLUSH [None]
  - MYALGIA [None]
  - PHOTOPHOBIA [None]
  - SUICIDE ATTEMPT [None]
  - SUPRAVENTRICULAR TACHYCARDIA [None]
  - TEMPERATURE INTOLERANCE [None]
